FAERS Safety Report 25036078 (Version 1)
Quarter: 2025Q1

REPORT INFORMATION
  Report Type: Spontaneous
  Country: US (occurrence: US)
  Receive Date: 20250304
  Receipt Date: 20250304
  Transmission Date: 20250408
  Serious: No
  Sender: ABBVIE
  Company Number: US-ABBVIE-6159061

PATIENT
  Age: 43 Year
  Sex: Female
  Weight: 61.688 kg

DRUGS (2)
  1. ARMOUR THYROID [Suspect]
     Active Substance: THYROID, PORCINE
     Indication: Hyperthyroidism
     Dosage: FORM STRENGTH: 120 MG
     Route: 048
     Dates: start: 2022
  2. CYTOMEL [Concomitant]
     Active Substance: LIOTHYRONINE SODIUM
     Indication: Hyperthyroidism
     Dates: start: 2022

REACTIONS (4)
  - Thyroid hormones decreased [Recovering/Resolving]
  - Depressed mood [Recovering/Resolving]
  - Polymenorrhoea [Recovering/Resolving]
  - Fatigue [Recovering/Resolving]

NARRATIVE: CASE EVENT DATE: 20240101
